FAERS Safety Report 9368723 (Version 2)
Quarter: 2013Q3

REPORT INFORMATION
  Report Type: Report from Study
  Country: US (occurrence: US)
  Receive Date: 20130626
  Receipt Date: 20130801
  Transmission Date: 20140515
  Serious: Yes (Other)
  Sender: FDA-Public Use
  Company Number: US-ROCHE-1241462

PATIENT
  Sex: Male

DRUGS (6)
  1. PEGASYS [Suspect]
     Indication: CHRONIC HEPATITIS C
     Route: 065
     Dates: start: 2005
  2. PEGASYS [Suspect]
     Route: 058
     Dates: start: 20130621
  3. PEGASYS [Suspect]
     Route: 058
  4. RIBAVIRIN [Suspect]
     Indication: CHRONIC HEPATITIS C
     Route: 065
     Dates: start: 2005
  5. RIBAVIRIN [Concomitant]
     Indication: HEPATITIS C
     Dosage: 1200 MG DAILY DIVIDED DOSES
     Route: 048
     Dates: start: 20130621
  6. TELAPREVIR [Concomitant]
     Indication: HEPATITIS C

REACTIONS (2)
  - Liver transplant [Unknown]
  - Hepatitis C [Unknown]
